FAERS Safety Report 9861005 (Version 2)
Quarter: 2014Q1

REPORT INFORMATION
  Report Type: Spontaneous
  Country: None (occurrence: GB)
  Receive Date: 20140202
  Receipt Date: 20140202
  Transmission Date: 20141002
  Serious: Yes (Hospitalization)
  Sender: FDA-Public Use
  Company Number: GB-ALLERGAN-1302824US

PATIENT
  Age: 74 Year
  Sex: Male
  Weight: 61.1 kg

DRUGS (9)
  1. BOTOX [Suspect]
     Indication: TORTICOLLIS
     Dosage: 120 UNITS, SINGLE
     Route: 030
     Dates: start: 20130207, end: 20130207
  2. BOTOX [Suspect]
     Dosage: 50 UNITS, SINGLE
     Route: 030
     Dates: start: 20130207, end: 20130207
  3. BOTOX [Suspect]
     Dosage: 30 UNITS, SINGLE
     Route: 030
     Dates: start: 20130207, end: 20130207
  4. BOTOX [Suspect]
     Dosage: 20 UNITS, SINGLE
     Route: 030
     Dates: start: 20130207, end: 20130207
  5. BOTOX [Suspect]
     Dosage: 10 UNITS, SINGLE
     Route: 030
     Dates: start: 20130207, end: 20130207
  6. BOTOX [Suspect]
     Dosage: 10 UNITS, SINGLE
     Route: 030
     Dates: start: 20130207, end: 20130207
  7. ATENOLOL [Concomitant]
     Indication: HYPERTENSION
     Dosage: 25 MG, QD
     Route: 048
  8. BENDROFLUMETHIAZIDE [Concomitant]
     Indication: HYPERTENSION
     Dosage: 2.5 MG, QD
     Route: 048
  9. DOTHIEPIN [Concomitant]
     Indication: DEPRESSION
     Dosage: 25 MG, UNK
     Route: 048

REACTIONS (1)
  - Dysphagia [Not Recovered/Not Resolved]
